FAERS Safety Report 6346265-0 (Version None)
Quarter: 2009Q3

REPORT INFORMATION
  Report Type: 
  Country: None (occurrence: None)
  Receive Date: 20090909
  Receipt Date: 20090819
  Transmission Date: 20100115
  Serious: Yes (Hospitalization)
  Sender: FDA-Public Use
  Company Number: JP-ROCHE-652333

PATIENT
  Sex: Male

DRUGS (9)
  1. MYCOPHENOLATE MOFETIL [Suspect]
     Route: 048
  2. MYCOPHENOLATE MOFETIL [Suspect]
     Route: 048
     Dates: start: 20090415, end: 20090818
  3. NEORAL [Suspect]
     Route: 048
     Dates: start: 20090513, end: 20090801
  4. MEDROL [Suspect]
     Route: 048
     Dates: start: 20090520, end: 20090801
  5. TAKEPRON [Concomitant]
     Route: 048
     Dates: start: 20090325, end: 20090801
  6. TAKEPRON [Concomitant]
     Route: 048
     Dates: start: 20090818
  7. MAALOX [Concomitant]
     Route: 048
     Dates: start: 20090323, end: 20090101
  8. SANDIMMUNE [Concomitant]
     Route: 048
     Dates: start: 20090818
  9. SOLU-MEDROL [Concomitant]
     Route: 041
     Dates: start: 20090818

REACTIONS (2)
  - CHOLECYSTITIS ACUTE [None]
  - PANCREATITIS ACUTE [None]
